FAERS Safety Report 4506912-2 (Version None)
Quarter: 2004Q4

REPORT INFORMATION
  Report Type: 
  Country: None (occurrence: None)
  Receive Date: 20041117
  Receipt Date: 20041110
  Transmission Date: 20050328
  Serious: Yes (Life-Threatening)
  Sender: FDA-Public Use
  Company Number: 2004073688

PATIENT
  Age: 63 Year
  Sex: Female

DRUGS (7)
  1. LIPITOR [Suspect]
     Indication: HYPERLIPIDAEMIA
     Dosage: 5 MG (1 IN 1 D), ORAL
     Route: 048
     Dates: start: 20020510, end: 20040830
  2. LEVOTHYROXINE SODIUM [Concomitant]
  3. NITRAZEPAM [Concomitant]
  4. FLUNITRAZEPAM (FLUNITRAZEPAM) [Concomitant]
  5. ETIZOLAM (ETIZOLAM) [Concomitant]
  6. SULPIRIDE (SULPIRIDE) [Concomitant]
  7. CLOTIAZEPAM (CLOTIAZEPAM) [Concomitant]

REACTIONS (10)
  - ANXIETY [None]
  - AUTOIMMUNE THYROIDITIS [None]
  - DEPRESSION [None]
  - DRUG RESISTANCE [None]
  - EAR DISCOMFORT [None]
  - FATIGUE [None]
  - INSOMNIA [None]
  - SOCIAL AVOIDANT BEHAVIOUR [None]
  - STRESS SYMPTOMS [None]
  - SUICIDAL IDEATION [None]
